FAERS Safety Report 10005613 (Version 2)
Quarter: 2014Q2

REPORT INFORMATION
  Report Type: Spontaneous
  Country: US (occurrence: US)
  Receive Date: 20140313
  Receipt Date: 20140501
  Transmission Date: 20141212
  Serious: No
  Sender: FDA-Public Use
  Company Number: US-BIOGENIDEC-2014BI020821

PATIENT
  Sex: Female

DRUGS (4)
  1. TECFIDERA [Suspect]
     Indication: MULTIPLE SCLEROSIS
     Dates: start: 2013
  2. TECFIDERA [Suspect]
     Indication: MULTIPLE SCLEROSIS
     Route: 048
     Dates: start: 2013
  3. TECFIDERA [Suspect]
     Indication: MULTIPLE SCLEROSIS
     Route: 048
     Dates: start: 201401
  4. AVONEX [Concomitant]
     Indication: MULTIPLE SCLEROSIS
     Route: 030
     Dates: start: 20111213, end: 20130422

REACTIONS (10)
  - Urticaria [Recovered/Resolved]
  - Vaginal haemorrhage [Unknown]
  - Anaemia [Unknown]
  - Intentional underdose [Unknown]
  - Malaise [Recovered/Resolved]
  - Menstrual disorder [Not Recovered/Not Resolved]
  - Gastric disorder [Recovered/Resolved]
  - Flushing [Not Recovered/Not Resolved]
  - Gastrointestinal disorder [Recovered/Resolved]
  - Dyspepsia [Not Recovered/Not Resolved]
